FAERS Safety Report 8920312 (Version 4)
Quarter: 2013Q4

REPORT INFORMATION
  Report Type: Report from Study
  Country: US (occurrence: US)
  Receive Date: 20121122
  Receipt Date: 20131108
  Transmission Date: 20140711
  Serious: Yes (Other)
  Sender: FDA-Public Use
  Company Number: US-ROCHE-1154358

PATIENT
  Sex: 0

DRUGS (2)
  1. BEVACIZUMAB [Suspect]
     Indication: ADENOCARCINOMA PANCREAS
     Dosage: ON DAYS 1, 15, 29 AND 43.
     Route: 042
  2. GEMCITABINE HYDROCHLORIDE [Suspect]
     Indication: ADENOCARCINOMA PANCREAS
     Dosage: ON DAY 1, 15 AND 29
     Route: 042

REACTIONS (16)
  - Liver function test abnormal [Unknown]
  - Neutropenia [Unknown]
  - Pulmonary embolism [Unknown]
  - Blood glucose increased [Unknown]
  - Abdominal pain [Unknown]
  - Deep vein thrombosis [Unknown]
  - Pneumonia [Unknown]
  - Hypertension [Unknown]
  - Fatigue [Unknown]
  - Nausea [Unknown]
  - Vomiting [Unknown]
  - Diarrhoea [Unknown]
  - Post procedural haemorrhage [Unknown]
  - Malaise [Unknown]
  - Wound complication [Unknown]
  - Vascular pseudoaneurysm ruptured [Unknown]
